FAERS Safety Report 10034882 (Version 2)
Quarter: 2014Q2

REPORT INFORMATION
  Report Type: Spontaneous
  Country: IE (occurrence: IE)
  Receive Date: 20140325
  Receipt Date: 20140401
  Transmission Date: 20141212
  Serious: Yes (Other)
  Sender: FDA-Public Use
  Company Number: IE-SA-2014SA036976

PATIENT
  Age: 74 Year
  Sex: Female

DRUGS (2)
  1. EPINEPHRINE [Suspect]
     Indication: ANAPHYLACTIC REACTION
     Route: 065
  2. CORTICOSTEROID NOS [Concomitant]

REACTIONS (2)
  - Drug abuse [Unknown]
  - Drug resistance [Unknown]
